FAERS Safety Report 7016809-4 (Version None)
Quarter: 2010Q3

REPORT INFORMATION
  Report Type: 
  Country: None (occurrence: None)
  Receive Date: 20100927
  Receipt Date: 20100922
  Transmission Date: 20110219
  Serious: Yes (Death)
  Sender: FDA-Public Use
  Company Number: PHHY2010NL41544

PATIENT
  Sex: Female
  Weight: 49 kg

DRUGS (5)
  1. TASIGNA [Suspect]
     Dosage: 400 MG, BID
     Dates: start: 20090506, end: 20100731
  2. TASIGNA [Suspect]
     Dosage: 200 MG, BID
     Dates: start: 20090826
  3. OXAZEPAM [Concomitant]
     Dosage: IF NECESSARY 1 TABLET (10 MG)
  4. PAROXETINE HCL [Concomitant]
     Dosage: 10 MG, QD
  5. DOMPERIDONE [Concomitant]
     Dosage: 1 TABLET (10 MG), 1-4 TIMES DAILY

REACTIONS (2)
  - DIARRHOEA [None]
  - MALIGNANT NEOPLASM PROGRESSION [None]
